FAERS Safety Report 7597169-7 (Version None)
Quarter: 2011Q3

REPORT INFORMATION
  Report Type: 
  Country: None (occurrence: None)
  Receive Date: 20110708
  Receipt Date: 20100629
  Transmission Date: 20111222
  Serious: No
  Sender: FDA-Public Use
  Company Number: US-GLAXOSMITHKLINE-A0867646A

PATIENT
  Age: 49 Year
  Sex: Male

DRUGS (3)
  1. FLOVENT [Suspect]
     Indication: ASTHMA
     Dosage: 1PUFF TWICE PER DAY
     Route: 055
  2. ALBUTEROL SULFATE AUTOHALER [Concomitant]
  3. AZITHROMYCIN [Concomitant]

REACTIONS (2)
  - BRONCHITIS [None]
  - PRODUCTIVE COUGH [None]
